FAERS Safety Report 9958157 (Version 1)
Quarter: 2014Q1

REPORT INFORMATION
  Report Type: Report from Study
  Country: US (occurrence: US)
  Receive Date: 20140304
  Receipt Date: 20140304
  Transmission Date: 20141002
  Serious: No
  Sender: FDA-Public Use
  Company Number: US-ABBVIE-13P-163-1093312-00

PATIENT
  Age: 68 Year
  Sex: Female

DRUGS (5)
  1. HUMIRA [Suspect]
     Indication: CROHN^S DISEASE
     Dates: start: 201010
  2. HUMIRA [Suspect]
     Dates: start: 20130519
  3. DEPLIN [Suspect]
     Indication: PRODUCT USED FOR UNKNOWN INDICATION
  4. ARMOUR THYROID [Concomitant]
     Indication: PRODUCT USED FOR UNKNOWN INDICATION
  5. PENTASA [Concomitant]
     Indication: CROHN^S DISEASE

REACTIONS (4)
  - Inappropriate schedule of drug administration [Unknown]
  - Injection site pain [Recovered/Resolved]
  - Confusional state [Unknown]
  - Activities of daily living impaired [Unknown]
